FAERS Safety Report 16712271 (Version 3)
Quarter: 2019Q3

REPORT INFORMATION
  Report Type: Spontaneous
  Country: US (occurrence: US)
  Receive Date: 20190816
  Receipt Date: 20190903
  Transmission Date: 20191004
  Serious: No
  Sender: FDA-Public Use
  Company Number: US-PFIZER INC-2019349269

PATIENT
  Age: 73 Year
  Sex: Female
  Weight: 122.4 kg

DRUGS (4)
  1. DILANTIN [Suspect]
     Active Substance: PHENYTOIN
     Dosage: 3 DF, UNK (ONE DURING THE DAY AND THEN TWO AT NIGHT)
  2. DILANTIN [Suspect]
     Active Substance: PHENYTOIN
     Dosage: 3 DF, UNK, (TAKE ALL 3 AT NIGHT )
  3. DILANTIN [Suspect]
     Active Substance: PHENYTOIN
     Indication: ELECTROENCEPHALOGRAM ABNORMAL
     Dosage: 100 MG, 2X/DAY [1 IN MORNING AND 1 AT NIGHT]
     Route: 048
  4. METOPROLOL. [Concomitant]
     Active Substance: METOPROLOL
     Indication: PALPITATIONS
     Dosage: 25 MG, 1X/DAY [1 IN THE EVENING]

REACTIONS (7)
  - Bradyphrenia [Unknown]
  - Hypopnoea [Unknown]
  - Pain [Not Recovered/Not Resolved]
  - Photosensitivity reaction [Recovering/Resolving]
  - Coordination abnormal [Unknown]
  - Balance disorder [Unknown]
  - Erythema [Unknown]
